FAERS Safety Report 23341086 (Version 1)
Quarter: 2023Q4

REPORT INFORMATION
  Report Type: Spontaneous
  Country: JP (occurrence: JP)
  Receive Date: 20231227
  Receipt Date: 20231227
  Transmission Date: 20240110
  Serious: Yes (Death, Other)
  Sender: FDA-Public Use
  Company Number: JP-GE HEALTHCARE-2023JSU011731

PATIENT
  Age: 86 Year
  Sex: Male

DRUGS (2)
  1. OMNIPAQUE [Suspect]
     Active Substance: IOHEXOL
     Indication: Computerised tomogram heart
     Dosage: UNK UNK, SINGLE
     Route: 042
     Dates: start: 20231214, end: 20231214
  2. OMNIPAQUE [Suspect]
     Active Substance: IOHEXOL
     Indication: Coronary artery stenosis

REACTIONS (4)
  - Acute respiratory distress syndrome [Fatal]
  - Contrast media allergy [Fatal]
  - Cardio-respiratory arrest [Fatal]
  - Sepsis [Not Recovered/Not Resolved]

NARRATIVE: CASE EVENT DATE: 20231214
